FAERS Safety Report 8810134 (Version 2)
Quarter: 2012Q4

REPORT INFORMATION
  Report Type: Report from Study
  Country: US (occurrence: US)
  Receive Date: 20120926
  Receipt Date: 20121003
  Transmission Date: 20130627
  Serious: Yes (Other)
  Sender: FDA-Public Use
  Company Number: US-US-EMD SERONO, INC.-7162163

PATIENT
  Sex: Male

DRUGS (5)
  1. REBIF [Suspect]
     Indication: MULTIPLE SCLEROSIS
     Route: 058
     Dates: start: 200904, end: 201206
  2. REBIF [Suspect]
     Route: 058
  3. PRAMIPEXOLE [Concomitant]
     Indication: RESTLESS LEGS SYNDROME
  4. TRAMADOL [Concomitant]
     Indication: PRODUCT USED FOR UNKNOWN INDICATION
  5. HYDROCODONE ES [Concomitant]
     Indication: PRODUCT USED FOR UNKNOWN INDICATION

REACTIONS (2)
  - Lung neoplasm malignant [Not Recovered/Not Resolved]
  - Metastases to neck [Not Recovered/Not Resolved]
